FAERS Safety Report 18933617 (Version 1)
Quarter: 2021Q1

REPORT INFORMATION
  Report Type: Spontaneous
  Country: US (occurrence: US)
  Receive Date: 20210223
  Receipt Date: 20210223
  Transmission Date: 20210420
  Serious: No
  Sender: FDA-Public Use
  Company Number: None

PATIENT
  Sex: Female

DRUGS (1)
  1. BOTULAX [Suspect]
     Active Substance: BOTULINUM TOXIN TYPE A

REACTIONS (1)
  - Movement disorder [None]

NARRATIVE: CASE EVENT DATE: 20210211
